FAERS Safety Report 6749861-1 (Version None)
Quarter: 2010Q2

REPORT INFORMATION
  Report Type: 
  Country: None (occurrence: None)
  Receive Date: 20100601
  Receipt Date: 20100526
  Transmission Date: 20101027
  Serious: Yes (Congenital Anomaly)
  Sender: FDA-Public Use
  Company Number: US-BRISTOL-MYERS SQUIBB COMPANY-15070287

PATIENT
  Age: 1 Day
  Sex: Male
  Weight: 3 kg

DRUGS (8)
  1. REYATAZ [Suspect]
     Dosage: COURSE 2:FROM24SEP09-15OCT09.
     Route: 064
     Dates: end: 20090728
  2. TRUVADA [Suspect]
     Dosage: 1 DF = 1 UNTIS NOS COURSE:1
     Route: 064
     Dates: end: 20090728
  3. COMBIVIR [Suspect]
     Dosage: 2DF-2 UNIT NOS
     Route: 064
     Dates: start: 20090728, end: 20090924
  4. KALETRA [Suspect]
     Dosage: 1 DF = 4 UNITS NOS
     Route: 064
     Dates: start: 20090728, end: 20090924
  5. EPIVIR [Suspect]
     Route: 064
     Dates: start: 20090924
  6. LEXIVA [Suspect]
     Route: 064
     Dates: start: 20091015, end: 20091217
  7. NORVIR [Suspect]
     Dosage: COURSE 2:FROM15OCT09
     Route: 064
     Dates: end: 20090728
  8. VIREAD [Suspect]
     Route: 064
     Dates: start: 20091015

REACTIONS (2)
  - ADRENOGENITAL SYNDROME [None]
  - CONGENITAL HYDRONEPHROSIS [None]
